FAERS Safety Report 9928005 (Version 1)
Quarter: 2014Q1

REPORT INFORMATION
  Report Type: Spontaneous
  Country: US (occurrence: None)
  Receive Date: 20140226
  Receipt Date: 20140226
  Transmission Date: 20141002
  Serious: Yes (Other)
  Sender: FDA-Public Use
  Company Number: None

PATIENT
  Age: 75 Year
  Sex: Female
  Weight: 54.43 kg

DRUGS (1)
  1. DILTIAZEM [Suspect]

REACTIONS (4)
  - Blood pressure increased [None]
  - Product substitution issue [None]
  - Drug ineffective [None]
  - Product quality issue [None]
